FAERS Safety Report 9142356 (Version 1)
Quarter: 2013Q1

REPORT INFORMATION
  Report Type: Spontaneous
  Country: IE (occurrence: IE)
  Receive Date: 20130306
  Receipt Date: 20130306
  Transmission Date: 20140127
  Serious: Yes (Other)
  Sender: FDA-Public Use
  Company Number: IE-009507513-1303IRL000577

PATIENT
  Age: 60 Year
  Sex: Female
  Weight: 60.32 kg

DRUGS (3)
  1. FOSAVANCE [Suspect]
     Indication: OSTEOPENIA
     Dosage: UNK, QW
     Route: 048
     Dates: start: 2005, end: 2013
  2. CRESTOR [Concomitant]
     Indication: BLOOD CHOLESTEROL INCREASED
     Dosage: 10 MG, QD
     Route: 048
  3. NARAMIG [Concomitant]
     Dosage: 2.5 MG, PRN
     Route: 048

REACTIONS (1)
  - Pain [Unknown]
